FAERS Safety Report 4465973-X (Version None)
Quarter: 2004Q4

REPORT INFORMATION
  Report Type: 
  Country: None (occurrence: None)
  Receive Date: 20041001
  Receipt Date: 20041001
  Transmission Date: 20050328
  Serious: No
  Sender: FDA-Public Use
  Company Number: None

PATIENT
  Age: 54 Year
  Sex: Male
  Weight: 95.2554 kg

DRUGS (1)
  1. VIOXX [Suspect]
     Indication: ARTHRALGIA

REACTIONS (2)
  - BEDRIDDEN [None]
  - DEPRESSION [None]
